FAERS Safety Report 20254864 (Version 1)
Quarter: 2021Q4

REPORT INFORMATION
  Report Type: Spontaneous
  Country: PL (occurrence: PL)
  Receive Date: 20211230
  Receipt Date: 20211230
  Transmission Date: 20220303
  Serious: Yes (Other)
  Sender: FDA-Public Use
  Company Number: PL-NOVARTISPH-NVSC2021PL296818

PATIENT
  Age: 88 Year
  Sex: Male

DRUGS (44)
  1. ATORVASTATIN CALCIUM [Suspect]
     Active Substance: ATORVASTATIN CALCIUM
     Indication: Product used for unknown indication
     Dosage: 40 MG, QD
     Route: 065
     Dates: start: 201810
  2. ATORVASTATIN CALCIUM [Suspect]
     Active Substance: ATORVASTATIN CALCIUM
     Dosage: 40 MG, QD
     Route: 065
     Dates: start: 201810
  3. ATORVASTATIN CALCIUM [Suspect]
     Active Substance: ATORVASTATIN CALCIUM
     Dosage: 40 MG, QD
     Route: 065
     Dates: start: 201910
  4. FUROSEMIDE [Suspect]
     Active Substance: FUROSEMIDE
     Indication: Product used for unknown indication
     Dosage: 40 MG, QD
     Route: 065
     Dates: start: 201910
  5. FUROSEMIDE [Suspect]
     Active Substance: FUROSEMIDE
     Dosage: 50 MG, QD
     Route: 065
  6. FUROSEMIDE [Suspect]
     Active Substance: FUROSEMIDE
     Dosage: 40 MG, BID
     Route: 065
     Dates: start: 202109
  7. FUROSEMIDE [Suspect]
     Active Substance: FUROSEMIDE
     Dosage: 40 MG, BID
     Route: 065
     Dates: start: 201810
  8. FUROSEMIDE [Suspect]
     Active Substance: FUROSEMIDE
     Dosage: 40 MG, BID
     Route: 065
     Dates: start: 201910
  9. FUROSEMIDE [Suspect]
     Active Substance: FUROSEMIDE
     Dosage: 40 MG QAM
     Route: 065
     Dates: start: 201810
  10. FUROSEMIDE [Suspect]
     Active Substance: FUROSEMIDE
     Dosage: 40 MG, BID
     Route: 065
     Dates: start: 20211112
  11. METOPROLOL TARTRATE [Suspect]
     Active Substance: METOPROLOL TARTRATE
     Indication: Product used for unknown indication
     Dosage: 100 MG, BID
     Route: 065
     Dates: start: 201911
  12. METOPROLOL TARTRATE [Suspect]
     Active Substance: METOPROLOL TARTRATE
     Dosage: 50 ? 25 ? 25 MG
     Route: 065
     Dates: start: 201810
  13. METOPROLOL TARTRATE [Suspect]
     Active Substance: METOPROLOL TARTRATE
     Dosage: 25 MG, TID
     Route: 065
     Dates: start: 201810
  14. METOPROLOL TARTRATE [Suspect]
     Active Substance: METOPROLOL TARTRATE
     Dosage: 25 MG, TID
     Route: 065
     Dates: start: 201910
  15. METOPROLOL TARTRATE [Suspect]
     Active Substance: METOPROLOL TARTRATE
     Dosage: 5 MG, QD
     Route: 065
     Dates: start: 20211112
  16. ROSUVASTATIN CALCIUM [Suspect]
     Active Substance: ROSUVASTATIN CALCIUM
     Indication: Product used for unknown indication
     Dosage: 20 MG, QD
     Route: 065
     Dates: start: 20211112
  17. ROSUVASTATIN CALCIUM [Suspect]
     Active Substance: ROSUVASTATIN CALCIUM
     Dosage: 10 MG, QD
     Route: 065
     Dates: start: 202109
  18. ROSUVASTATIN CALCIUM [Suspect]
     Active Substance: ROSUVASTATIN CALCIUM
     Dosage: 10 MG
     Route: 065
     Dates: start: 201910
  19. APIXABAN [Suspect]
     Active Substance: APIXABAN
     Indication: Product used for unknown indication
     Dosage: 2.5 MG, BID
     Route: 065
     Dates: start: 201810
  20. APIXABAN [Suspect]
     Active Substance: APIXABAN
     Dosage: 2.5 MG, BID
     Route: 065
     Dates: start: 20211112
  21. APIXABAN [Suspect]
     Active Substance: APIXABAN
     Dosage: 2.5 MG, BID
     Route: 065
     Dates: start: 201910
  22. ASPIRIN [Suspect]
     Active Substance: ASPIRIN
     Indication: Product used for unknown indication
     Dosage: 2.5 MG, BID
     Route: 065
     Dates: start: 201810
  23. RAMIPRIL [Suspect]
     Active Substance: RAMIPRIL
     Indication: Product used for unknown indication
     Dosage: 2.5 MG, QD
     Route: 065
  24. RAMIPRIL [Suspect]
     Active Substance: RAMIPRIL
     Dosage: 2.5 MG, BID
     Route: 065
  25. SACUBITRIL [Suspect]
     Active Substance: SACUBITRIL
     Indication: Product used for unknown indication
     Dosage: (24/26 MG)
     Route: 065
     Dates: start: 202109
  26. SACUBITRIL [Suspect]
     Active Substance: SACUBITRIL
     Dosage: DOSAGE FORM (24/26 MG)
     Route: 065
     Dates: start: 201810
  27. SACUBITRIL [Suspect]
     Active Substance: SACUBITRIL
     Dosage: 1 DF, QD
     Route: 065
     Dates: start: 20211112
  28. SACUBITRIL [Suspect]
     Active Substance: SACUBITRIL
     Dosage: 2 DOSAGE FORM (49/51 MG ), BID
     Route: 065
     Dates: start: 201911
  29. PANTOPRAZOLE SODIUM [Suspect]
     Active Substance: PANTOPRAZOLE SODIUM
     Indication: Product used for unknown indication
     Dosage: 20 MG, QD
     Route: 065
     Dates: start: 20211112
  30. PANTOPRAZOLE SODIUM [Suspect]
     Active Substance: PANTOPRAZOLE SODIUM
     Dosage: 10 MG, QD
     Route: 065
  31. PANTOPRAZOLE SODIUM [Suspect]
     Active Substance: PANTOPRAZOLE SODIUM
     Dosage: 20 MG, QD
     Route: 065
     Dates: start: 201910
  32. PANTOPRAZOLE SODIUM [Suspect]
     Active Substance: PANTOPRAZOLE SODIUM
     Dosage: 20 MG, QD
     Route: 065
     Dates: start: 201810
  33. PANTOPRAZOLE SODIUM [Suspect]
     Active Substance: PANTOPRAZOLE SODIUM
     Dosage: 20 MG, QD
     Route: 065
     Dates: start: 202109
  34. EPLERENONE [Suspect]
     Active Substance: EPLERENONE
     Indication: Product used for unknown indication
     Dosage: 25 MG, QD
     Route: 065
     Dates: start: 201810
  35. EPLERENONE [Suspect]
     Active Substance: EPLERENONE
     Dosage: 25 MG, QD
     Route: 065
     Dates: start: 20211112
  36. EPLERENONE [Suspect]
     Active Substance: EPLERENONE
     Dosage: 50 MG, QD
     Route: 065
     Dates: start: 201910
  37. EPLERENONE [Suspect]
     Active Substance: EPLERENONE
     Dosage: 50 MG, QD
     Route: 065
     Dates: start: 201910
  38. EPLERENONE [Suspect]
     Active Substance: EPLERENONE
     Dosage: 25 MG, QD
     Route: 065
     Dates: start: 202109
  39. TORSEMIDE [Suspect]
     Active Substance: TORSEMIDE
     Indication: Product used for unknown indication
     Dosage: 10 MG, QD
     Route: 065
     Dates: start: 201910
  40. TORSEMIDE [Suspect]
     Active Substance: TORSEMIDE
     Dosage: 15 MG, QD
     Route: 065
     Dates: start: 201810
  41. TORSEMIDE [Suspect]
     Active Substance: TORSEMIDE
     Dosage: 15 MG, QD
     Route: 065
     Dates: start: 201910
  42. TORSEMIDE [Suspect]
     Active Substance: TORSEMIDE
     Dosage: 10 MG, BID
     Route: 065
     Dates: start: 202109
  43. TORSEMIDE [Suspect]
     Active Substance: TORSEMIDE
     Dosage: 10 MG, BID
     Route: 065
     Dates: start: 20211112
  44. TORSEMIDE [Suspect]
     Active Substance: TORSEMIDE
     Dosage: 10 MG
     Route: 065
     Dates: start: 201810

REACTIONS (17)
  - Urinary tract infection [Unknown]
  - Myopathy [Unknown]
  - Congestive cardiomyopathy [Unknown]
  - Cardiac failure chronic [Unknown]
  - Cardiomyopathy [Unknown]
  - Cardiogenic shock [Unknown]
  - Atrial thrombosis [Unknown]
  - Sinus tachycardia [Unknown]
  - Pneumonia [Unknown]
  - Pulmonary congestion [Unknown]
  - Disease progression [Unknown]
  - Cardiac failure [Unknown]
  - Chronic kidney disease [Unknown]
  - Ventricular arrhythmia [Unknown]
  - Dyskinesia [Unknown]
  - Atrial fibrillation [Unknown]
  - Low cardiac output syndrome [Unknown]

NARRATIVE: CASE EVENT DATE: 20180101
